FAERS Safety Report 18068497 (Version 1)
Quarter: 2020Q3

REPORT INFORMATION
  Report Type: Spontaneous
  Country: IT (occurrence: IT)
  Receive Date: 20200724
  Receipt Date: 20200724
  Transmission Date: 20201103
  Serious: Yes (Other)
  Sender: FDA-Public Use
  Company Number: NVSC2020IT207795

PATIENT
  Age: 11 Year
  Sex: Male

DRUGS (2)
  1. PREDNISONE. [Suspect]
     Active Substance: PREDNISONE
     Indication: HYPERFERRITINAEMIA
     Dosage: REDUCED TO 0.5 MG/KG, QD
     Route: 065
  2. PREDNISONE. [Suspect]
     Active Substance: PREDNISONE
     Indication: STILL^S DISEASE
     Dosage: 2 MG/KG, QD
     Route: 065

REACTIONS (3)
  - Hyperferritinaemia [Unknown]
  - Still^s disease [Unknown]
  - Product use in unapproved indication [Unknown]
